FAERS Safety Report 22366437 (Version 1)
Quarter: 2023Q2

REPORT INFORMATION
  Report Type: Spontaneous
  Country: US (occurrence: US)
  Receive Date: 20230525
  Receipt Date: 20230525
  Transmission Date: 20230722
  Serious: Yes (Hospitalization, Other)
  Sender: FDA-Public Use
  Company Number: US-APOTEX-2023AP008369

PATIENT
  Age: 37 Year
  Sex: Male

DRUGS (1)
  1. ACETAMINOPHEN [Suspect]
     Active Substance: ACETAMINOPHEN
     Indication: Product used for unknown indication
     Dosage: UNK
     Route: 065

REACTIONS (7)
  - Overdose [Unknown]
  - Hypothermia [Unknown]
  - Tachycardia [Unknown]
  - Tachypnoea [Unknown]
  - Hypertension [Unknown]
  - Acidosis [Unknown]
  - Hepatotoxicity [Unknown]
